FAERS Safety Report 15994623 (Version 3)
Quarter: 2019Q2

REPORT INFORMATION
  Report Type: Spontaneous
  Country: FR (occurrence: FR)
  Receive Date: 20190222
  Receipt Date: 20190501
  Transmission Date: 20190711
  Serious: No
  Sender: FDA-Public Use
  Company Number: FR-009507513-1902FRA006308

PATIENT
  Age: 24 Year
  Sex: Male
  Weight: 78 kg

DRUGS (8)
  1. AERIUS (DESLORATADINE) [Concomitant]
     Active Substance: DESLORATADINE
     Indication: RHINITIS ALLERGIC
  2. MULTICROM [Concomitant]
     Active Substance: CROMOLYN SODIUM
  3. THERAPY UNSPECIFIED [Suspect]
     Active Substance: UNSPECIFIED INGREDIENT
  4. DESLORATADINE MYLAN [Suspect]
     Active Substance: DESLORATADINE
     Indication: URTICARIA
  5. DESLORATADINE MYLAN [Suspect]
     Active Substance: DESLORATADINE
     Indication: RHINITIS ALLERGIC
     Dosage: 1 DOSAGE FORM, QD
     Dates: start: 20140528, end: 20140530
  6. AERIUS (DESLORATADINE) [Concomitant]
     Active Substance: DESLORATADINE
     Indication: URTICARIA
     Dosage: ABOUT TEN YEARS
     Route: 065
  7. DESLORATADINE MYLAN [Suspect]
     Active Substance: DESLORATADINE
     Indication: SEASONAL ALLERGY
  8. DESLORATADINE MYLAN [Suspect]
     Active Substance: DESLORATADINE
     Indication: SEASONAL ALLERGY

REACTIONS (1)
  - No adverse event [Unknown]
